FAERS Safety Report 6896351-1 (Version None)
Quarter: 2010Q3

REPORT INFORMATION
  Report Type: 
  Country: None (occurrence: None)
  Receive Date: 20100802
  Receipt Date: 20090112
  Transmission Date: 20110219
  Serious: No
  Sender: FDA-Public Use
  Company Number: US-PFIZER INC-2009155110

PATIENT
  Age: 65 Year
  Sex: Male
  Weight: 91 kg

DRUGS (2)
  1. NEURONTIN [Suspect]
     Indication: ANXIETY
     Dosage: UNK
  2. KLONOPIN [Concomitant]

REACTIONS (2)
  - ANXIETY [None]
  - DEPRESSION [None]
